FAERS Safety Report 7804329-6 (Version None)
Quarter: 2011Q4

REPORT INFORMATION
  Report Type: 
  Country: None (occurrence: None)
  Receive Date: 20111010
  Receipt Date: 20111005
  Transmission Date: 20120403
  Serious: Yes (Death)
  Sender: FDA-Public Use
  Company Number: US-SANOFI-AVENTIS-2011SA061236

PATIENT
  Age: 64 Year
  Sex: Male
  Weight: 56.27 kg

DRUGS (17)
  1. PROMETHAZINE [Concomitant]
     Indication: NAUSEA
     Route: 048
     Dates: start: 20110810
  2. ALLEGRA D 24 HOUR [Concomitant]
     Route: 048
     Dates: start: 20100222
  3. PRAVASTATIN [Concomitant]
     Route: 048
  4. VIAGRA [Concomitant]
     Route: 048
     Dates: start: 20090330
  5. ALBUTEROL [Concomitant]
     Route: 055
     Dates: start: 20090303
  6. ASPIRIN [Concomitant]
     Route: 048
  7. LISINOPRIL [Concomitant]
     Route: 048
  8. PROVENTIL [Concomitant]
     Route: 055
     Dates: start: 20090719
  9. NITROGLYCERIN [Concomitant]
     Indication: CHEST PAIN
     Route: 060
     Dates: start: 20090303
  10. PLAVIX [Suspect]
     Indication: CORONARY ARTERY DISEASE
     Route: 065
     Dates: start: 20110805
  11. PLAVIX [Suspect]
     Route: 065
     Dates: start: 20110805
  12. METOPROLOL TARTRATE [Concomitant]
     Route: 048
  13. ADVAIR DISKUS 100/50 [Concomitant]
     Dosage: 100-50MCG DOSE
     Route: 055
  14. OXYCODONE HCL [Concomitant]
  15. FUROSEMIDE [Concomitant]
     Route: 048
  16. PREVACID [Concomitant]
     Route: 048
     Dates: start: 20090330
  17. LORTAB [Concomitant]
     Indication: PAIN
     Dosage: 10-500MG TABLET
     Dates: start: 20100205

REACTIONS (1)
  - DEATH [None]
